FAERS Safety Report 11870855 (Version 1)
Quarter: 2015Q4

REPORT INFORMATION
  Report Type: Spontaneous
  Country: US (occurrence: None)
  Receive Date: 20151224
  Receipt Date: 20151224
  Transmission Date: 20160305
  Serious: No
  Sender: FDA-Public Use
  Company Number: None

PATIENT
  Age: 79 Year
  Sex: Female

DRUGS (35)
  1. HEPARIN [Suspect]
     Active Substance: HEPARIN SODIUM
     Indication: ANTICOAGULANT THERAPY
     Dosage: 600 U/HR CONTINUOUS IV
     Route: 042
     Dates: start: 20151111, end: 20151112
  2. WARFARIN [Suspect]
     Active Substance: WARFARIN
     Dosage: PER INR DAILY PO
     Route: 048
  3. ACETAMINOPHEN-CODEINE [Concomitant]
     Active Substance: ACETAMINOPHEN\CODEINE PHOSPHATE
  4. LIDOCAINE VISCOUS [Concomitant]
     Active Substance: LIDOCAINE HYDROCHLORIDE
  5. SENNA [Concomitant]
     Active Substance: SENNA LEAF\SENNOSIDES\SENNOSIDES A AND B
  6. AZATHIOPRINE. [Concomitant]
     Active Substance: AZATHIOPRINE
  7. CEFPODOXIME [Concomitant]
     Active Substance: CEFPODOXIME
  8. CHOLECALCIFEROL [Concomitant]
     Active Substance: CHOLECALCIFEROL
  9. FLUTICASONE AND SALMETEROL [Concomitant]
     Active Substance: FLUTICASONE PROPIONATE\SALMETEROL XINAFOATE
  10. HYDROXYCHLOROQUINE [Concomitant]
     Active Substance: HYDROXYCHLOROQUINE
  11. RANITIDINE [Concomitant]
     Active Substance: RANITIDINE\RANITIDINE HYDROCHLORIDE
  12. CODEINE [Concomitant]
     Active Substance: CODEINE
  13. NYSTATIN ORAL LIQUID [Concomitant]
     Active Substance: NYSTATIN
  14. MAGNESIUM HYDROXIDE. [Concomitant]
     Active Substance: MAGNESIUM HYDROXIDE
  15. OXYBUTYNIN [Concomitant]
     Active Substance: OXYBUTYNIN
  16. SIMETHICONE (DIMETHICONE) [Concomitant]
     Active Substance: DIMETHICONE
  17. COLCHICINE. [Concomitant]
     Active Substance: COLCHICINE
  18. FUROSEMIDE. [Concomitant]
     Active Substance: FUROSEMIDE
  19. MAGNESIUM OXIDE. [Concomitant]
     Active Substance: MAGNESIUM OXIDE
  20. SODIUM CHLORIDE. [Concomitant]
     Active Substance: SODIUM CHLORIDE
  21. VALACYCLOVIR [Concomitant]
     Active Substance: VALACYCLOVIR HYDROCHLORIDE
  22. ONDANSETRON [Concomitant]
     Active Substance: ONDANSETRON
  23. PHYTONADIONE. [Concomitant]
     Active Substance: PHYTONADIONE
  24. EMOLLIENT CREAM [Concomitant]
  25. TOLTERODINE [Concomitant]
     Active Substance: TOLTERODINE
  26. ACETAMINOPHEN. [Concomitant]
     Active Substance: ACETAMINOPHEN
  27. ALBUTEROL. [Concomitant]
     Active Substance: ALBUTEROL
  28. ALUMINUM HYDROXIDE. [Concomitant]
     Active Substance: ALUMINUM HYDROXIDE
  29. CALCIUM CARBONATE/VITAMIN D [Concomitant]
     Active Substance: CALCIUM CARBONATE\VITAMIN D
  30. DILTIAZEM [Concomitant]
     Active Substance: DILTIAZEM
  31. HYDROCORTISONE. [Concomitant]
     Active Substance: HYDROCORTISONE
  32. LANSOPRAZOLE. [Concomitant]
     Active Substance: LANSOPRAZOLE
  33. MAGNESIUM SULFATE. [Concomitant]
     Active Substance: MAGNESIUM SULFATE
  34. SODIUM CHLORIDE NASAL SPRAY [Concomitant]
  35. TIOTROPIUM [Concomitant]
     Active Substance: TIOTROPIUM

REACTIONS (7)
  - Hypertension [None]
  - Haemorrhage intracranial [None]
  - Activated partial thromboplastin time prolonged [None]
  - Fall [None]
  - Unresponsive to stimuli [None]
  - Incorrect drug administration rate [None]
  - Subdural haematoma [None]

NARRATIVE: CASE EVENT DATE: 20151112
